FAERS Safety Report 11461599 (Version 1)
Quarter: 2015Q3

REPORT INFORMATION
  Report Type: Spontaneous
  Country: US (occurrence: US)
  Receive Date: 20150831
  Receipt Date: 20150831
  Transmission Date: 20151125
  Serious: No
  Sender: FDA-Public Use
  Company Number: US-ELI_LILLY_AND_COMPANY-US201008002336

PATIENT
  Age: 88 Year
  Sex: Female

DRUGS (16)
  1. CYMBALTA [Suspect]
     Active Substance: DULOXETINE HYDROCHLORIDE
     Indication: DIABETIC NEUROPATHY
     Dosage: 30 MG, UNK
  2. CYMBALTA [Suspect]
     Active Substance: DULOXETINE HYDROCHLORIDE
     Dosage: 60 MG, UNK
  3. OXYCODONE [Concomitant]
     Active Substance: OXYCODONE
     Dosage: 5 MG, AS NEEDED
  4. ACTONEL [Concomitant]
     Active Substance: RISEDRONATE SODIUM
     Dosage: 35 MG, WEEKLY (1/W)
  5. LISINOPRIL. [Concomitant]
     Active Substance: LISINOPRIL
     Dosage: 5 MG, DAILY (1/D)
  6. PRAVACHOL [Concomitant]
     Active Substance: PRAVASTATIN SODIUM
     Dosage: 40 MG, DAILY (1/D)
  7. CALCIUM [Concomitant]
     Active Substance: CALCIUM
  8. IMDUR [Concomitant]
     Active Substance: ISOSORBIDE MONONITRATE
     Dosage: 30 MG, DAILY (1/D)
  9. CYMBALTA [Suspect]
     Active Substance: DULOXETINE HYDROCHLORIDE
     Dosage: 90 MG, UNK
  10. OXYCONTIN [Concomitant]
     Active Substance: OXYCODONE HYDROCHLORIDE
     Dosage: 10 MG, 2/D
  11. GABAPENTIN. [Concomitant]
     Active Substance: GABAPENTIN
     Dosage: 300 MG, EACH MORNING
  12. MULTIVITAMIN [Concomitant]
     Active Substance: VITAMINS
  13. VITAMIN D [Concomitant]
     Active Substance: CHOLECALCIFEROL
  14. GABAPENTIN. [Concomitant]
     Active Substance: GABAPENTIN
     Dosage: 600 MG, EACH EVENING
  15. PREDNISONE. [Concomitant]
     Active Substance: PREDNISONE
     Dosage: 1 MG, DAILY (1/D)
  16. PLAVIX [Concomitant]
     Active Substance: CLOPIDOGREL BISULFATE
     Dosage: 75 MG, DAILY (1/D)

REACTIONS (10)
  - Hallucination [Unknown]
  - Delirium [Unknown]
  - Dementia [Unknown]
  - Nausea [Recovered/Resolved]
  - Restlessness [Unknown]
  - Cognitive disorder [Unknown]
  - Abdominal discomfort [Recovered/Resolved]
  - Agitation [Unknown]
  - Drug ineffective [Unknown]
  - Chills [Recovered/Resolved]
